FAERS Safety Report 7784052-7 (Version None)
Quarter: 2011Q3

REPORT INFORMATION
  Report Type: 
  Country: None (occurrence: None)
  Receive Date: 20110926
  Receipt Date: 20110912
  Transmission Date: 20111222
  Serious: Yes (Other)
  Sender: FDA-Public Use
  Company Number: 1000023962

PATIENT
  Sex: Female

DRUGS (2)
  1. LEXAPRO [Suspect]
     Indication: DEPRESSION
     Dosage: 10 MG (10 MG, 1 IN 1 D), ORAL
     Route: 048
  2. MIRTAZAPINE [Concomitant]

REACTIONS (6)
  - PANIC ATTACK [None]
  - SUICIDAL IDEATION [None]
  - HYPERVENTILATION [None]
  - LISTLESS [None]
  - DEPENDENT PERSONALITY DISORDER [None]
  - DEPRESSED MOOD [None]
